FAERS Safety Report 20095748 (Version 2)
Quarter: 2022Q2

REPORT INFORMATION
  Report Type: Spontaneous
  Country: CA (occurrence: CA)
  Receive Date: 20211122
  Receipt Date: 20220513
  Transmission Date: 20220721
  Serious: Yes (Other)
  Sender: FDA-Public Use
  Company Number: CA-SA-SAC20211118000553

PATIENT
  Sex: Female

DRUGS (51)
  1. HYDROXYCHLOROQUINE SULFATE [Suspect]
     Active Substance: HYDROXYCHLOROQUINE SULFATE
     Indication: Rheumatoid arthritis
  2. HYDROXYCHLOROQUINE SULFATE [Suspect]
     Active Substance: HYDROXYCHLOROQUINE SULFATE
     Indication: Arthritis
  3. HYDROXYCHLOROQUINE SULFATE [Suspect]
     Active Substance: HYDROXYCHLOROQUINE SULFATE
  4. ARAVA [Suspect]
     Active Substance: LEFLUNOMIDE
     Indication: Rheumatoid arthritis
  5. ARAVA [Suspect]
     Active Substance: LEFLUNOMIDE
  6. ACTEMRA [Suspect]
     Active Substance: TOCILIZUMAB
     Indication: Rheumatoid arthritis
  7. ACTEMRA [Suspect]
     Active Substance: TOCILIZUMAB
  8. CETIRIZINE HYDROCHLORIDE [Suspect]
     Active Substance: CETIRIZINE HYDROCHLORIDE
     Indication: Product used for unknown indication
  9. CETIRIZINE HYDROCHLORIDE [Suspect]
     Active Substance: CETIRIZINE HYDROCHLORIDE
  10. CETIRIZINE HYDROCHLORIDE [Suspect]
     Active Substance: CETIRIZINE HYDROCHLORIDE
  11. CIMZIA [Suspect]
     Active Substance: CERTOLIZUMAB PEGOL
     Indication: Rheumatoid arthritis
     Route: 058
  12. CIMZIA [Suspect]
     Active Substance: CERTOLIZUMAB PEGOL
  13. CIMZIA [Suspect]
     Active Substance: CERTOLIZUMAB PEGOL
  14. CORTISONE ACETATE [Suspect]
     Active Substance: CORTISONE ACETATE
     Indication: Rheumatoid arthritis
  15. CORTISONE ACETATE [Suspect]
     Active Substance: CORTISONE ACETATE
  16. CORTISONE ACETATE [Suspect]
     Active Substance: CORTISONE ACETATE
  17. ENBREL [Suspect]
     Active Substance: ETANERCEPT
     Indication: Rheumatoid arthritis
     Route: 058
  18. ENBREL [Suspect]
     Active Substance: ETANERCEPT
  19. FOLIC ACID [Suspect]
     Active Substance: FOLIC ACID
     Indication: Rheumatoid arthritis
  20. FOLIC ACID [Suspect]
     Active Substance: FOLIC ACID
  21. FOLIC ACID [Suspect]
     Active Substance: FOLIC ACID
  22. FOSAMAX [Suspect]
     Active Substance: ALENDRONATE SODIUM
     Indication: Rheumatoid arthritis
  23. FOSAMAX [Suspect]
     Active Substance: ALENDRONATE SODIUM
  24. HUMIRA [Suspect]
     Active Substance: ADALIMUMAB
     Indication: Rheumatoid arthritis
     Dosage: 40 MG
     Route: 058
  25. HUMIRA [Suspect]
     Active Substance: ADALIMUMAB
  26. METHOTREXATE [Suspect]
     Active Substance: METHOTREXATE
     Indication: Rheumatoid arthritis
  27. METHOTREXATE [Suspect]
     Active Substance: METHOTREXATE
  28. METHOTREXATE [Suspect]
     Active Substance: METHOTREXATE
  29. ORENCIA [Suspect]
     Active Substance: ABATACEPT
     Indication: Rheumatoid arthritis
     Route: 042
  30. ORENCIA [Suspect]
     Active Substance: ABATACEPT
  31. PHTHALYLSULFATHIAZOLE [Suspect]
     Active Substance: PHTHALYLSULFATHIAZOLE
     Indication: Rheumatoid arthritis
  32. PHTHALYLSULFATHIAZOLE [Suspect]
     Active Substance: PHTHALYLSULFATHIAZOLE
  33. PREDNISONE [Suspect]
     Active Substance: PREDNISONE
     Indication: Rheumatoid arthritis
  34. PREDNISONE [Suspect]
     Active Substance: PREDNISONE
  35. REMICADE [Suspect]
     Active Substance: INFLIXIMAB
     Indication: Rheumatoid arthritis
     Route: 042
  36. REMICADE [Suspect]
     Active Substance: INFLIXIMAB
  37. REMICADE [Suspect]
     Active Substance: INFLIXIMAB
  38. RITUXIMAB [Suspect]
     Active Substance: RITUXIMAB
     Indication: Rheumatoid arthritis
     Route: 041
  39. RITUXIMAB [Suspect]
     Active Substance: RITUXIMAB
  40. RITUXIMAB [Suspect]
     Active Substance: RITUXIMAB
  41. SIMPONI [Suspect]
     Active Substance: GOLIMUMAB
     Indication: Rheumatoid arthritis
     Route: 058
  42. SIMPONI [Suspect]
     Active Substance: GOLIMUMAB
  43. SULFASALAZINE [Suspect]
     Active Substance: SULFASALAZINE
     Indication: Rheumatoid arthritis
     Route: 058
  44. SULFASALAZINE [Suspect]
     Active Substance: SULFASALAZINE
  45. SULFASALAZINE [Suspect]
     Active Substance: SULFASALAZINE
  46. SULFATHIAZOLE SODIUM [Suspect]
     Active Substance: SULFATHIAZOLE SODIUM
  47. ABATACEPT [Suspect]
     Active Substance: ABATACEPT
     Indication: Rheumatoid arthritis
  48. GOLIMUMAB [Suspect]
     Active Substance: GOLIMUMAB
     Indication: Rheumatoid arthritis
  49. ETANERCEPT [Suspect]
     Active Substance: ETANERCEPT
     Indication: Rheumatoid arthritis
  50. TOCILIZUMAB [Suspect]
     Active Substance: TOCILIZUMAB
     Indication: Rheumatoid arthritis
  51. ADALIMUMAB [Suspect]
     Active Substance: ADALIMUMAB
     Indication: Rheumatoid arthritis

REACTIONS (12)
  - Abdominal discomfort [Not Recovered/Not Resolved]
  - Arthropathy [Not Recovered/Not Resolved]
  - Fatigue [Not Recovered/Not Resolved]
  - Glossodynia [Not Recovered/Not Resolved]
  - Pain [Not Recovered/Not Resolved]
  - Pemphigus [Not Recovered/Not Resolved]
  - Swelling [Not Recovered/Not Resolved]
  - Systemic lupus erythematosus [Not Recovered/Not Resolved]
  - Hand deformity [Not Recovered/Not Resolved]
  - Wound [Not Recovered/Not Resolved]
  - Alopecia [Not Recovered/Not Resolved]
  - Contraindicated product administered [Unknown]
